FAERS Safety Report 4444625-6 (Version None)
Quarter: 2004Q3

REPORT INFORMATION
  Report Type: 
  Country: None (occurrence: None)
  Receive Date: 20040907
  Receipt Date: 20040825
  Transmission Date: 20050211
  Serious: Yes (Other)
  Sender: FDA-Public Use
  Company Number: K200401299

PATIENT
  Age: 40 Year
  Sex: Female

DRUGS (9)
  1. NORDETTE-21 [Suspect]
     Dosage: 1 TABLET, ORAL
     Route: 048
     Dates: start: 20020301, end: 20020101
  2. FLORINEF [Concomitant]
  3. HYDROCORTISONE [Concomitant]
  4. ZOLPIDEM TARTRATE [Concomitant]
  5. PROPAVAN (PROPIOMAZINE MALEATE) [Concomitant]
  6. STESOLID (DIAZEPAM) [Concomitant]
  7. REMERON [Concomitant]
  8. DHEA (PRASTERONE) [Concomitant]
  9. MELATONIN (MELATONIN) [Concomitant]

REACTIONS (4)
  - ABDOMINAL DISTENSION [None]
  - BREAST NEOPLASM [None]
  - BULIMIA NERVOSA [None]
  - DYSPNOEA [None]
